FAERS Safety Report 22652398 (Version 8)
Quarter: 2025Q2

REPORT INFORMATION
  Report Type: Spontaneous
  Country: US (occurrence: US)
  Receive Date: 20230628
  Receipt Date: 20250417
  Transmission Date: 20250716
  Serious: Yes (Hospitalization, Other)
  Sender: ASTELLAS
  Company Number: US-ASTELLAS-2023US009013

PATIENT
  Age: 79 Year
  Sex: Male
  Weight: 83 kg

DRUGS (53)
  1. PADCEV [Suspect]
     Active Substance: ENFORTUMAB VEDOTIN-EJFV
     Indication: Transitional cell carcinoma metastatic
     Route: 042
     Dates: start: 20210713, end: 20210713
  2. PADCEV [Suspect]
     Active Substance: ENFORTUMAB VEDOTIN-EJFV
     Route: 042
     Dates: start: 20210727, end: 20210727
  3. PADCEV [Suspect]
     Active Substance: ENFORTUMAB VEDOTIN-EJFV
     Route: 042
     Dates: start: 20210803, end: 20210803
  4. PADCEV [Suspect]
     Active Substance: ENFORTUMAB VEDOTIN-EJFV
     Route: 042
     Dates: start: 20210810, end: 20210810
  5. PADCEV [Suspect]
     Active Substance: ENFORTUMAB VEDOTIN-EJFV
     Route: 042
     Dates: start: 20210629, end: 20210629
  6. PADCEV [Suspect]
     Active Substance: ENFORTUMAB VEDOTIN-EJFV
     Route: 042
     Dates: start: 20210706, end: 20210706
  7. PADCEV [Suspect]
     Active Substance: ENFORTUMAB VEDOTIN-EJFV
     Route: 042
     Dates: start: 20210824, end: 20210824
  8. PADCEV [Suspect]
     Active Substance: ENFORTUMAB VEDOTIN-EJFV
     Route: 042
     Dates: start: 20210831, end: 20210831
  9. FLOMAX [Concomitant]
     Active Substance: TAMSULOSIN HYDROCHLORIDE
     Indication: Benign prostatic hyperplasia
     Route: 048
  10. FLOMAX [Concomitant]
     Active Substance: TAMSULOSIN HYDROCHLORIDE
     Route: 048
     Dates: start: 20201221
  11. CORDARONE [Concomitant]
     Active Substance: AMIODARONE HYDROCHLORIDE
     Indication: Atrial fibrillation
     Route: 048
  12. CORDARONE [Concomitant]
     Active Substance: AMIODARONE HYDROCHLORIDE
     Route: 048
     Dates: start: 20210826
  13. CORDARONE [Concomitant]
     Active Substance: AMIODARONE HYDROCHLORIDE
     Route: 048
     Dates: start: 20210902
  14. NORVASC [Concomitant]
     Active Substance: AMLODIPINE BESYLATE
     Indication: Product used for unknown indication
     Dosage: TAKE 0.5 TABLETS (5 MG TOTAL) BY MOUTH DAILY
     Route: 048
     Dates: start: 20200209, end: 20200227
  15. NORVASC [Concomitant]
     Active Substance: AMLODIPINE BESYLATE
     Dosage: EVERY MORNING
     Route: 048
  16. NORVASC [Concomitant]
     Active Substance: AMLODIPINE BESYLATE
     Dosage: EVERY MORNING
     Route: 048
     Dates: start: 20200204
  17. ELIQUIS [Concomitant]
     Active Substance: APIXABAN
     Indication: Deep vein thrombosis
     Route: 048
     Dates: start: 20201007
  18. VITAMIN C [Concomitant]
     Active Substance: ASCORBIC ACID
     Indication: Product used for unknown indication
     Route: 048
  19. LIPITOR [Concomitant]
     Active Substance: ATORVASTATIN CALCIUM
     Indication: Product used for unknown indication
     Dosage: MOUTH NIGHTLY
     Route: 048
     Dates: start: 20200526
  20. CALCIUM CARBONATE\VITAMIN D [Concomitant]
     Active Substance: CALCIUM CARBONATE\VITAMIN D
     Indication: Product used for unknown indication
     Dosage: (OYSTER SHELL CALCIUM + VITAMIN D) 500-200 MG-UNIT TABS TABLET
     Route: 048
  21. COREG [Concomitant]
     Active Substance: CARVEDILOL
     Indication: Product used for unknown indication
     Dosage: TAKE 2 TABLETS (12.5 MG TOTAL) BY MOUTH 2 (TWO) TIMES A DAY.
     Route: 048
  22. COREG [Concomitant]
     Active Substance: CARVEDILOL
     Dosage: TAKE 2 TABLETS (12.5 MG TOTAL) BY MOUTH 2 (TWO) TIMES A DAY.
     Route: 048
     Dates: start: 20200927
  23. COREG [Concomitant]
     Active Substance: CARVEDILOL
     Dosage: TAKE 2 TABLETS (12.5 MG TOTAL) BY MOUTH 2 (TWO) TIMES A DAY.
     Route: 048
     Dates: start: 20190209, end: 20200927
  24. COSOPT [Concomitant]
     Active Substance: DORZOLAMIDE HYDROCHLORIDE\TIMOLOL MALEATE
     Indication: Product used for unknown indication
     Dosage: PLACE 1 DROP INTO THE RIGHT EYE?22.3-6.8 MG/ML SOLN OPHTHALMIC SOLUTION
     Route: 065
  25. CHOLECALCIFEROL [Concomitant]
     Active Substance: CHOLECALCIFEROL
     Indication: Product used for unknown indication
     Dosage: 125 MCG (5000 UNITS)
     Route: 048
  26. HYZAAR [Concomitant]
     Active Substance: HYDROCHLOROTHIAZIDE\LOSARTAN POTASSIUM
     Indication: Product used for unknown indication
     Dosage: 1 TABLET (50-12.5 MG TABLET)
     Route: 048
     Dates: start: 20201030
  27. GLUCOPHAGE [Concomitant]
     Active Substance: METFORMIN HYDROCHLORIDE
     Indication: Product used for unknown indication
     Route: 048
  28. ZOFRAN [Concomitant]
     Active Substance: ONDANSETRON HYDROCHLORIDE
     Indication: Nausea
     Route: 048
     Dates: start: 20201123
  29. JANUVIA [Concomitant]
     Active Substance: SITAGLIPTIN PHOSPHATE
     Indication: Product used for unknown indication
     Route: 048
  30. JANUVIA [Concomitant]
     Active Substance: SITAGLIPTIN PHOSPHATE
     Route: 048
     Dates: start: 20210114
  31. TIMOPTIC [Concomitant]
     Active Substance: TIMOLOL MALEATE
     Indication: Product used for unknown indication
     Dosage: 0.25% OPHTHALMIC SOLUTION?PLACE 1 DROP INTO BOTH EYES
     Route: 048
  32. ULTRAM [Concomitant]
     Active Substance: TRAMADOL HYDROCHLORIDE
     Indication: Product used for unknown indication
     Route: 048
     Dates: start: 20200926
  33. VITAMIN E [Concomitant]
     Active Substance: .ALPHA.-TOCOPHEROL
     Indication: Product used for unknown indication
     Dosage: 400 UNITS
     Route: 048
  34. VITAMIN E [Concomitant]
     Active Substance: .ALPHA.-TOCOPHEROL
     Dosage: 1600 UNITS EVERY MORNING
     Route: 048
  35. POTASSIUM CHLORIDE [Concomitant]
     Active Substance: POTASSIUM CHLORIDE
     Indication: Product used for unknown indication
     Dosage: 1 TABLET (20 MEQ TOTAL)
     Route: 048
     Dates: start: 20210803
  36. KEYTRUDA [Concomitant]
     Active Substance: PEMBROLIZUMAB
     Indication: Bladder cancer
     Route: 042
     Dates: start: 20210304
  37. KEYTRUDA [Concomitant]
     Active Substance: PEMBROLIZUMAB
     Route: 042
     Dates: start: 20210415
  38. KEYTRUDA [Concomitant]
     Active Substance: PEMBROLIZUMAB
     Route: 042
     Dates: start: 20210527
  39. KEYTRUDA [Concomitant]
     Active Substance: PEMBROLIZUMAB
     Route: 042
     Dates: start: 20211210
  40. KEYTRUDA [Concomitant]
     Active Substance: PEMBROLIZUMAB
     Route: 042
  41. KEYTRUDA [Concomitant]
     Active Substance: PEMBROLIZUMAB
     Route: 042
     Dates: start: 20210121
  42. Dorzolamide HCl-Timolol Mal [Concomitant]
     Indication: Product used for unknown indication
     Route: 042
     Dates: end: 20210123
  43. CIPRO [Concomitant]
     Active Substance: CIPROFLOXACIN HYDROCHLORIDE
     Indication: Product used for unknown indication
     Dosage: TAKE 500 MG BY MOUTH 2 (TWO) TIMES A DAY. FOR 10 DAYS
     Route: 048
     Dates: start: 20190201, end: 20190209
  44. FLAGYL [Concomitant]
     Active Substance: METRONIDAZOLE\METRONIDAZOLE HYDROCHLORIDE
     Indication: Product used for unknown indication
     Dosage: TAKE 1 TABLET BY MOUTH THREE TIMES A DAY FOR 10 DAYS
     Route: 048
     Dates: start: 20190201, end: 20190209
  45. CINNAMON [Concomitant]
     Active Substance: CINNAMON
     Indication: Product used for unknown indication
     Dosage: TAKE 1 TABLET BY MOUTH THREE TIMES A DAY FOR 10 DAYS
     Route: 048
     Dates: end: 20200926
  46. VIBRAMYCIN [Concomitant]
     Active Substance: DOXYCYCLINE
     Indication: Product used for unknown indication
     Dosage: TAKE 1 TABLET BY MOUTH THREE TIMES A DAY FOR 10 DAYS
     Route: 048
     Dates: start: 20190209, end: 20190219
  47. ZETIA [Concomitant]
     Active Substance: EZETIMIBE
     Indication: Product used for unknown indication
     Dosage: WITH BREAKFAST
     Route: 048
  48. ASPIRIN [Concomitant]
     Active Substance: ASPIRIN
     Indication: Product used for unknown indication
     Dosage: TAKE 1 TABLET BY MOUTH THREE TIMES A DAY FOR 10 DAYS
     Route: 048
     Dates: start: 20200927, end: 20210623
  49. AMARYL [Concomitant]
     Active Substance: GLIMEPIRIDE
     Indication: Diabetes mellitus
     Dosage: WITH BREAKFAST
     Route: 048
  50. AMARYL [Concomitant]
     Active Substance: GLIMEPIRIDE
     Dosage: WITH BREAKFAST
     Route: 048
  51. GLUCOPHAGE [Concomitant]
     Active Substance: METFORMIN HYDROCHLORIDE
     Indication: Diabetes mellitus
     Route: 048
     Dates: start: 20070111, end: 2021
  52. TIMOPTIC [Concomitant]
     Active Substance: TIMOLOL MALEATE
     Indication: Glaucoma
     Route: 047
  53. PRED FORTE [Concomitant]
     Active Substance: PREDNISOLONE ACETATE
     Indication: Product used for unknown indication
     Dosage: USE IN EFFECTED EYE 3X PER DAY, 10 ML
     Route: 047

REACTIONS (17)
  - Stevens-Johnson syndrome [Recovered/Resolved]
  - Toxic epidermal necrolysis [Recovering/Resolving]
  - Cardiac failure [Recovered/Resolved]
  - Febrile neutropenia [Recovered/Resolved]
  - Neutropenic sepsis [Recovered/Resolved]
  - Weight decreased [Recovering/Resolving]
  - Acute kidney injury [Recovered/Resolved]
  - Anaemia [Recovering/Resolving]
  - Diabetic ketoacidosis [Recovered/Resolved]
  - Acute respiratory failure [Recovered/Resolved]
  - Hypotension [Recovered/Resolved]
  - Leukopenia [Unknown]
  - Neutropenia [Recovered/Resolved]
  - Dermatitis exfoliative generalised [Recovered/Resolved]
  - Somnolence [Not Recovered/Not Resolved]
  - Hyperglycaemia [Unknown]
  - Troponin increased [Recovered/Resolved]

NARRATIVE: CASE EVENT DATE: 20210801
